FAERS Safety Report 5336361-9 (Version None)
Quarter: 2007Q2

REPORT INFORMATION
  Report Type: 
  Country: None (occurrence: None)
  Receive Date: 20070523
  Receipt Date: 20070510
  Transmission Date: 20071010
  Serious: Yes (Hospitalization)
  Sender: FDA-Public Use
  Company Number: 8023977

PATIENT
  Age: 47 Year
  Sex: Male

DRUGS (4)
  1. KEPPRA [Suspect]
     Indication: EPILEPSY
     Dosage: 1000 MG 1/D
  2. KEPPRA [Suspect]
     Indication: EPILEPSY
     Dosage: 2000 MG 1/D
  3. TIMOX [Concomitant]
  4. VALPROATE SODIUM [Concomitant]

REACTIONS (7)
  - CONVULSION [None]
  - CYST [None]
  - DEPRESSION [None]
  - DISTURBANCE IN ATTENTION [None]
  - HEADACHE [None]
  - SLEEP WALKING [None]
  - SUICIDAL IDEATION [None]
